FAERS Safety Report 8965948 (Version 1)
Quarter: 2012Q4

REPORT INFORMATION
  Report Type: 
  Country: US (occurrence: US)
  Receive Date: 20121214
  Receipt Date: 20121214
  Transmission Date: 20130627
  Serious: Yes (Other)
  Sender: FDA-Public Use
  Company Number: US-PFIZER INC-2012316102

PATIENT
  Age: 51 Year
  Sex: Female
  Weight: 68.03 kg

DRUGS (3)
  1. LYRICA [Suspect]
     Indication: FIBROMYALGIA
     Dosage: 300 mg (150 mg x 2), 3x/day
     Route: 048
     Dates: start: 2009
  2. LIPITOR [Concomitant]
     Indication: HIGH CHOLESTEROL
     Dosage: UNK
  3. METFORMIN [Concomitant]
     Indication: DIABETES
     Dosage: UNK

REACTIONS (6)
  - Pain in extremity [Unknown]
  - Carpal tunnel syndrome [Unknown]
  - Weight increased [Unknown]
  - Chest pain [Unknown]
  - Drug ineffective [Unknown]
  - Drug tolerance increased [Unknown]
